FAERS Safety Report 15947124 (Version 2)
Quarter: 2019Q1

REPORT INFORMATION
  Report Type: Spontaneous
  Country: US (occurrence: US)
  Receive Date: 20190211
  Receipt Date: 20190329
  Transmission Date: 20190417
  Serious: No
  Sender: FDA-Public Use
  Company Number: US-ALLERGAN-1905380US

PATIENT
  Sex: Female

DRUGS (17)
  1. DALVANCE [Suspect]
     Active Substance: DALBAVANCIN
     Indication: INFECTION
     Dosage: 1500 MG, SINGLE
     Route: 042
     Dates: start: 20190128, end: 20190321
  2. VITAMIN D [Concomitant]
     Active Substance: CHOLECALCIFEROL
     Dosage: UNK, QD
  3. ZOLOFT [Concomitant]
     Active Substance: SERTRALINE HYDROCHLORIDE
     Dosage: 100 MG, QD
  4. CARDIZEM [Concomitant]
     Active Substance: DILTIAZEM HYDROCHLORIDE
     Dosage: 120 MG, QD
  5. DITROPAN [Concomitant]
     Active Substance: OXYBUTYNIN CHLORIDE
     Dosage: 5 MG, QD
  6. COREG [Concomitant]
     Active Substance: CARVEDILOL
     Dosage: 25 MG, BID
  7. PRILOSEC [Concomitant]
     Active Substance: OMEPRAZOLE MAGNESIUM
     Dosage: 20 MG, QD
  8. KLOR-CON [Concomitant]
     Active Substance: POTASSIUM CHLORIDE
     Dosage: 20 MG, QD
  9. SEROQUEL [Concomitant]
     Active Substance: QUETIAPINE FUMARATE
     Dosage: 25 MG, QHS
  10. VASOTEC [Concomitant]
     Active Substance: ENALAPRIL MALEATE
     Dosage: 10 MG, BID
  11. COUMADIN [Concomitant]
     Active Substance: WARFARIN SODIUM
     Dosage: 2.5 MG, QD
  12. ARICEPT [Concomitant]
     Active Substance: DONEPEZIL HYDROCHLORIDE
     Dosage: QHS
  13. IRON [Concomitant]
     Active Substance: IRON
     Dosage: 325 MG, QD
  14. LASIX [Concomitant]
     Active Substance: FUROSEMIDE
     Dosage: 40 MG, BID
  15. MVI [Concomitant]
     Active Substance: VITAMINS
     Dosage: UNK, QD
  16. NAMENDA [Concomitant]
     Active Substance: MEMANTINE HYDROCHLORIDE
     Dosage: 28 MG, QD
  17. EPOETIN [Concomitant]
     Active Substance: ERYTHROPOIETIN
     Dosage: AS DIRECTED

REACTIONS (2)
  - Back pain [Recovered/Resolved]
  - Red man syndrome [Unknown]
